FAERS Safety Report 16127790 (Version 2)
Quarter: 2019Q4

REPORT INFORMATION
  Report Type: Report from Study
  Country: JP (occurrence: JP)
  Receive Date: 20190328
  Receipt Date: 20191024
  Transmission Date: 20200122
  Serious: Yes (Other)
  Sender: FDA-Public Use
  Company Number: JP-VIFOR (INTERNATIONAL) INC.-VIT-2019-02894

PATIENT
  Age: 58 Year
  Sex: Male
  Weight: 70.3 kg

DRUGS (18)
  1. MIRCERA [Concomitant]
     Active Substance: METHOXY POLYETHYLENE GLYCOL-EPOETIN BETA
     Dates: start: 20160928, end: 20161012
  2. BAYASPIRIN [Concomitant]
     Active Substance: ASPIRIN
     Route: 048
  3. NESP [Concomitant]
     Active Substance: DARBEPOETIN ALFA
     Dates: start: 20160914, end: 20160928
  4. EBASTEL [Concomitant]
     Active Substance: EBASTINE
     Route: 048
  5. MAINTATE [Concomitant]
     Active Substance: BISOPROLOL FUMARATE
     Route: 048
  6. CRESTOR [Concomitant]
     Active Substance: ROSUVASTATIN CALCIUM
     Route: 048
  7. ADALAT CC [Concomitant]
     Active Substance: NIFEDIPINE
     Route: 048
  8. NORVASC [Concomitant]
     Active Substance: AMLODIPINE BESYLATE
     Route: 048
  9. NESP [Concomitant]
     Active Substance: DARBEPOETIN ALFA
     Dates: start: 20160824, end: 20160914
  10. VELPHORO [Suspect]
     Active Substance: FERRIC OXYHYDROXIDE
     Indication: HYPERPHOSPHATAEMIA
     Route: 048
     Dates: start: 20160413, end: 20161016
  11. OXAROL [Concomitant]
     Active Substance: MAXACALCITOL
     Route: 042
  12. OMEPRAL [Concomitant]
     Active Substance: OMEPRAZOLE
     Route: 048
  13. AVAPRO [Concomitant]
     Active Substance: IRBESARTAN
     Route: 048
  14. NESP [Concomitant]
     Active Substance: DARBEPOETIN ALFA
     Dates: start: 20161012, end: 20161026
  15. TM [Concomitant]
     Indication: GASTRIC ULCER
     Route: 048
     Dates: start: 20160316, end: 20160421
  16. VELPHORO [Suspect]
     Active Substance: FERRIC OXYHYDROXIDE
     Indication: CHRONIC KIDNEY DISEASE
     Route: 048
     Dates: start: 20170104
  17. MIRCERA [Concomitant]
     Active Substance: METHOXY POLYETHYLENE GLYCOL-EPOETIN BETA
     Indication: PRODUCT USED FOR UNKNOWN INDICATION
     Dates: end: 20160706
  18. TRAZENTA [Concomitant]
     Active Substance: LINAGLIPTIN
     Indication: DIABETES MELLITUS
     Route: 048
     Dates: end: 20160905

REACTIONS (18)
  - Gastric ulcer [Recovering/Resolving]
  - Diabetes mellitus [Recovering/Resolving]
  - Serum ferritin increased [Recovered/Resolved]
  - Hyperphosphataemia [Recovered/Resolved]
  - Hypertension [Recovered/Resolved]
  - Condition aggravated [Recovered/Resolved]
  - Diarrhoea [Recovered/Resolved]
  - Condition aggravated [Recovering/Resolving]
  - Myocardial ischaemia [Recovered/Resolved]
  - Condition aggravated [Recovering/Resolving]
  - Nasopharyngitis [Recovered/Resolved]
  - Gastric ulcer [Recovering/Resolving]
  - Hypertension [Recovering/Resolving]
  - Condition aggravated [Recovered/Resolved]
  - Hyperphosphataemia [Recovered/Resolved]
  - Enterocolitis [Recovered/Resolved]
  - Condition aggravated [Recovered/Resolved]
  - Arthralgia [Recovered/Resolved]

NARRATIVE: CASE EVENT DATE: 20160422
